FAERS Safety Report 4310212-3 (Version None)
Quarter: 2004Q1

REPORT INFORMATION
  Report Type: 
  Country: None (occurrence: None)
  Receive Date: 20040302
  Receipt Date: 20040302
  Transmission Date: 20041129
  Serious: Yes (Death)
  Sender: FDA-Public Use
  Company Number: None

PATIENT
  Age: 54 Year
  Sex: Female
  Weight: 70.3075 kg

DRUGS (2)
  1. LAMICTAL [Suspect]
     Dosage: 100 MG AM, 75 MG HS
  2. GINKGO  BILOBA [Suspect]
     Indication: DEPRESSION

REACTIONS (1)
  - DRUG INTERACTION [None]
